FAERS Safety Report 25160414 (Version 1)
Quarter: 2025Q2

REPORT INFORMATION
  Report Type: Other
  Country: CH (occurrence: CH)
  Receive Date: 20250404
  Receipt Date: 20250404
  Transmission Date: 20250717
  Serious: Yes (Hospitalization, Other)
  Sender: Atnahs Healthcare
  Company Number: None

PATIENT
  Age: 25 Year
  Sex: Female

DRUGS (9)
  1. VALIUM [Suspect]
     Active Substance: DIAZEPAM
     Indication: Product used for unknown indication
     Dates: end: 202503
  2. FLUOXETINE HYDROCHLORIDE [Suspect]
     Active Substance: FLUOXETINE HYDROCHLORIDE
     Indication: Product used for unknown indication
     Dates: start: 2022, end: 20250312
  3. FLUOXETINE HYDROCHLORIDE [Suspect]
     Active Substance: FLUOXETINE HYDROCHLORIDE
     Dates: start: 20250312
  4. SURMONTIL [Suspect]
     Active Substance: TRIMIPRAMINE MALEATE
     Indication: Product used for unknown indication
     Dates: end: 20250309
  5. LITHIUM SULFATE [Concomitant]
     Active Substance: LITHIUM SULFATE
     Indication: Product used for unknown indication
  6. INTUNIV [Concomitant]
     Active Substance: GUANFACINE HYDROCHLORIDE
     Indication: Product used for unknown indication
  7. QUETIAPINE FUMARATE [Concomitant]
     Active Substance: QUETIAPINE FUMARATE
     Indication: Product used for unknown indication
  8. QUETIAPINE FUMARATE [Concomitant]
     Active Substance: QUETIAPINE FUMARATE
     Dates: start: 20250314
  9. CLOTHIAPINE [Concomitant]
     Active Substance: CLOTHIAPINE
     Indication: Product used for unknown indication
     Dates: end: 202503

REACTIONS (3)
  - Toxic encephalopathy [Recovering/Resolving]
  - Drug interaction [Recovering/Resolving]
  - Antidepressant drug level increased [Unknown]

NARRATIVE: CASE EVENT DATE: 20250309
